FAERS Safety Report 25281888 (Version 1)
Quarter: 2025Q2

REPORT INFORMATION
  Report Type: Spontaneous
  Country: KR (occurrence: None)
  Receive Date: 20250508
  Receipt Date: 20250508
  Transmission Date: 20250716
  Serious: Yes (Life-Threatening, Hospitalization)
  Sender: SUPERNUS PHARMACEUTICALS, INC.
  Company Number: KR-SUPERNUS Pharmaceuticals, Inc.-SUP202504-001400

PATIENT
  Age: 46 Year
  Sex: Female

DRUGS (4)
  1. TOPIRAMATE [Suspect]
     Active Substance: TOPIRAMATE
     Indication: Obesity
  2. PHENTERMINE [Suspect]
     Active Substance: PHENTERMINE
     Indication: Obesity
  3. FLUOXETINE [Suspect]
     Active Substance: FLUOXETINE HYDROCHLORIDE
     Indication: Depression
  4. CHLORTHALIDONE [Concomitant]
     Active Substance: CHLORTHALIDONE
     Indication: Obesity

REACTIONS (7)
  - Drug interaction [Recovered/Resolved]
  - Serotonin syndrome [Recovered/Resolved]
  - Rhabdomyolysis [Recovered/Resolved]
  - Stress cardiomyopathy [Recovered/Resolved]
  - Pulmonary embolism [Recovered/Resolved]
  - Acute kidney injury [Recovered/Resolved]
  - Product use in unapproved indication [Unknown]
